FAERS Safety Report 7037293-0 (Version None)
Quarter: 2010Q4

REPORT INFORMATION
  Report Type: 
  Country: None (occurrence: None)
  Receive Date: 20101011
  Receipt Date: 20100929
  Transmission Date: 20110411
  Serious: Yes (Hospitalization)
  Sender: FDA-Public Use
  Company Number: FR-ELI_LILLY_AND_COMPANY-FR201008003279

PATIENT
  Age: 80 Year
  Sex: Male
  Weight: 57 kg

DRUGS (3)
  1. FORTEO [Suspect]
     Indication: OSTEOPOROSIS
     Dosage: 20 UG, DAILY (1/D)
     Route: 058
     Dates: start: 20100501
  2. LANTUS [Concomitant]
     Indication: DIABETES MELLITUS
     Dosage: 17 IU, DAILY (1/D)
     Route: 058
  3. APIDRA [Concomitant]
     Indication: DIABETES MELLITUS
     Dosage: UNK, 3/D
     Route: 058

REACTIONS (1)
  - GASTROENTERITIS [None]
